FAERS Safety Report 8084280-X (Version None)
Quarter: 2012Q1

REPORT INFORMATION
  Report Type: 
  Country: None (occurrence: None)
  Receive Date: 20120128
  Receipt Date: 20110307
  Transmission Date: 20120608
  Serious: No
  Sender: FDA-Public Use
  Company Number: US-ABBOTT-11P-163-0709919-00

PATIENT
  Sex: Male
  Weight: 68.1 kg

DRUGS (1)
  1. HUMIRA [Suspect]
     Indication: CROHN'S DISEASE
     Dates: start: 20090101

REACTIONS (5)
  - DEVICE MALFUNCTION [None]
  - INCORRECT PRODUCT STORAGE [None]
  - INCORRECT DOSE ADMINISTERED [None]
  - INJECTION SITE REACTION [None]
  - INJECTION SITE PAIN [None]
